FAERS Safety Report 8317583-1 (Version None)
Quarter: 2012Q2

REPORT INFORMATION
  Report Type: 
  Country: None (occurrence: None)
  Receive Date: 20120427
  Receipt Date: 20120123
  Transmission Date: 20120825
  Serious: No
  Sender: FDA-Public Use
  Company Number: US-GLAXOSMITHKLINE-A0963303A

PATIENT
  Sex: Female

DRUGS (4)
  1. ZOFRAN [Suspect]
     Indication: NAUSEA
     Route: 065
  2. PEGASYS [Concomitant]
     Dosage: 180MCG WEEKLY
     Route: 058
     Dates: start: 20111201
  3. RIBAVIRIN [Concomitant]
     Dosage: 1000MG PER DAY
  4. TELAPREVIR [Concomitant]
     Dosage: 750MG THREE TIMES PER DAY

REACTIONS (2)
  - MALAISE [None]
  - HEADACHE [None]
